FAERS Safety Report 11897791 (Version 1)
Quarter: 2016Q1

REPORT INFORMATION
  Report Type: Spontaneous
  Country: US (occurrence: None)
  Receive Date: 20160106
  Receipt Date: 20160106
  Transmission Date: 20160526
  Serious: Yes (Other)
  Sender: FDA-Public Use
  Company Number: None

PATIENT
  Age: 65 Year
  Sex: Male
  Weight: 102.7 kg

DRUGS (1)
  1. ETOMIDATE. [Suspect]
     Active Substance: ETOMIDATE
     Indication: ATRIAL FIBRILLATION
     Route: 042
     Dates: start: 20151022, end: 20151022

REACTIONS (2)
  - Myoclonus [None]
  - Tonic clonic movements [None]

NARRATIVE: CASE EVENT DATE: 20151022
